FAERS Safety Report 6343782-4 (Version None)
Quarter: 2009Q3

REPORT INFORMATION
  Report Type: 
  Country: None (occurrence: None)
  Receive Date: 20090908
  Receipt Date: 20090901
  Transmission Date: 20100115
  Serious: Yes (Hospitalization)
  Sender: FDA-Public Use
  Company Number: B0590768A

PATIENT
  Sex: Female

DRUGS (5)
  1. AUGMENTIN '125' [Suspect]
     Route: 048
     Dates: start: 20090317, end: 20090323
  2. APROVEL [Concomitant]
     Dosage: 150MG PER DAY
     Route: 048
  3. ELISOR [Concomitant]
     Dosage: 20MG PER DAY
     Route: 048
  4. KARDEGIC [Concomitant]
     Dosage: 75MG PER DAY
     Route: 048
  5. CACIT VITAMINE D3 [Concomitant]
     Dosage: 1UNIT PER DAY
     Route: 048

REACTIONS (5)
  - ASTHENIA [None]
  - HYPERTHERMIA [None]
  - NEUTROPHILIA [None]
  - RASH MACULAR [None]
  - TOXIC SKIN ERUPTION [None]
